FAERS Safety Report 24862264 (Version 1)
Quarter: 2025Q1

REPORT INFORMATION
  Report Type: Spontaneous
  Country: IQ (occurrence: IQ)
  Receive Date: 20250120
  Receipt Date: 20250120
  Transmission Date: 20250409
  Serious: Yes (Death, Other)
  Sender: SANOFI AVENTIS
  Company Number: IQ-SA-2025SA016182

PATIENT
  Age: 62 Year
  Sex: Male

DRUGS (5)
  1. SARCLISA [Suspect]
     Active Substance: ISATUXIMAB-IRFC
     Indication: Plasma cell myeloma refractory
     Dosage: 10 MG/KG, QW
     Route: 042
     Dates: start: 20241118
  2. SARCLISA [Suspect]
     Active Substance: ISATUXIMAB-IRFC
     Dosage: 10 MG/KG, QOW
     Route: 042
  3. POMALIDOMIDE [Concomitant]
     Active Substance: POMALIDOMIDE
     Indication: Plasma cell myeloma refractory
     Dosage: 4 MG, QD
     Route: 048
  4. DEXAMETHASONE [Concomitant]
     Active Substance: DEXAMETHASONE
     Indication: Plasma cell myeloma refractory
     Dosage: 40 MG, QW
     Route: 048
  5. LENALIDOMIDE [Concomitant]
     Active Substance: LENALIDOMIDE

REACTIONS (5)
  - Respiratory failure [Fatal]
  - Respiratory tract infection fungal [Unknown]
  - Neutropenia [Unknown]
  - Pyrexia [Unknown]
  - Cough [Unknown]

NARRATIVE: CASE EVENT DATE: 20241101
